FAERS Safety Report 5063124-4 (Version None)
Quarter: 2006Q3

REPORT INFORMATION
  Report Type: 
  Country: None (occurrence: None)
  Receive Date: 20060727
  Receipt Date: 20060718
  Transmission Date: 20061208
  Serious: Yes (Other)
  Sender: FDA-Public Use
  Company Number: 2006UW14662

PATIENT
  Age: 62 Year
  Sex: Female
  Weight: 60 kg

DRUGS (1)
  1. ARIMIDEX [Suspect]
     Indication: BREAST CANCER
     Route: 048
     Dates: start: 20010601, end: 20060615

REACTIONS (7)
  - ASTHENIA [None]
  - DIABETES INSIPIDUS [None]
  - HAEMATOCHEZIA [None]
  - INSOMNIA [None]
  - NUCLEAR MAGNETIC RESONANCE IMAGING ABNORMAL [None]
  - POLYDIPSIA [None]
  - SYNCOPE [None]
